FAERS Safety Report 17158925 (Version 3)
Quarter: 2020Q1

REPORT INFORMATION
  Report Type: Spontaneous
  Country: DE (occurrence: DE)
  Receive Date: 20191216
  Receipt Date: 20200113
  Transmission Date: 20200409
  Serious: Yes (Other)
  Sender: FDA-Public Use
  Company Number: DE-NOVOPROD-701119

PATIENT
  Age: 60 Year
  Sex: Male

DRUGS (2)
  1. NOVORAPID [Suspect]
     Active Substance: INSULIN ASPART
     Dosage: 3 I.E. (CORRECTION DOSE)
     Route: 058
  2. NOVORAPID [Suspect]
     Active Substance: INSULIN ASPART
     Indication: TYPE 1 DIABETES MELLITUS
     Dosage: 50 I.E.
     Route: 058

REACTIONS (7)
  - Blood glucose fluctuation [Unknown]
  - Fall [Unknown]
  - Loss of consciousness [Unknown]
  - Blood glucose fluctuation [Unknown]
  - Blood glucose fluctuation [Unknown]
  - Fall [Unknown]
  - Seizure [Unknown]

NARRATIVE: CASE EVENT DATE: 201808
